FAERS Safety Report 17816808 (Version 2)
Quarter: 2020Q4

REPORT INFORMATION
  Report Type: Report from Study
  Country: GB (occurrence: GB)
  Receive Date: 20200522
  Receipt Date: 20201217
  Transmission Date: 20210113
  Serious: Yes (Other)
  Sender: FDA-Public Use
  Company Number: GB-PFIZER INC-2020199359

PATIENT
  Age: 86 Year
  Sex: Male
  Weight: 71.3 kg

DRUGS (4)
  1. POLATUZUMAB VEDOTIN. [Suspect]
     Active Substance: POLATUZUMAB VEDOTIN
     Indication: DIFFUSE LARGE B-CELL LYMPHOMA REFRACTORY
     Dosage: 1.8 MG/KG, EVERY 3 WEEKS
     Route: 042
     Dates: start: 20200204
  2. BENDAMUSTINE [Suspect]
     Active Substance: BENDAMUSTINE
     Indication: DIFFUSE LARGE B-CELL LYMPHOMA REFRACTORY
     Dosage: 70 MG/M2, EVERY 3 WEEKS
     Route: 042
     Dates: start: 20200204
  3. ACICLOVIR [Concomitant]
     Active Substance: ACYCLOVIR
     Dosage: 500 MG
     Route: 048
     Dates: start: 20190625
  4. RITUXIMAB. [Suspect]
     Active Substance: RITUXIMAB
     Indication: DIFFUSE LARGE B-CELL LYMPHOMA REFRACTORY
     Dosage: 375 MG/M2, EVERY 3 WEEKS
     Route: 041
     Dates: start: 20200203

REACTIONS (3)
  - Loss of proprioception [Unknown]
  - Fatigue [Not Recovered/Not Resolved]
  - Influenza [Recovered/Resolved]

NARRATIVE: CASE EVENT DATE: 20200212
